FAERS Safety Report 24961456 (Version 1)
Quarter: 2025Q1

REPORT INFORMATION
  Report Type: Spontaneous
  Country: US (occurrence: US)
  Receive Date: 20250212
  Receipt Date: 20250212
  Transmission Date: 20250409
  Serious: No
  Sender: BIOGEN
  Company Number: US-BIOGEN-2024BI01280730

PATIENT
  Sex: Female

DRUGS (7)
  1. TYSABRI [Suspect]
     Active Substance: NATALIZUMAB
     Indication: Relapsing-remitting multiple sclerosis
     Route: 050
     Dates: start: 20240823
  2. COPAXONE [Concomitant]
     Active Substance: GLATIRAMER ACETATE
     Route: 050
  3. LISINOPRIL [Concomitant]
     Active Substance: LISINOPRIL
     Route: 050
  4. PAMELOR [Concomitant]
     Active Substance: NORTRIPTYLINE HYDROCHLORIDE
     Route: 050
  5. SYNTHROID [Concomitant]
     Active Substance: LEVOTHYROXINE SODIUM
     Route: 050
  6. VIMPAT [Concomitant]
     Active Substance: LACOSAMIDE
     Route: 050
  7. VITAMIN B12 [Concomitant]
     Active Substance: CYANOCOBALAMIN
     Route: 050

REACTIONS (20)
  - Gastrointestinal disorder [Unknown]
  - Retching [Unknown]
  - Asthenia [Unknown]
  - Tooth discolouration [Unknown]
  - Tooth fracture [Unknown]
  - Tooth disorder [Unknown]
  - Muscular weakness [Unknown]
  - Tooth erosion [Unknown]
  - Hypoaesthesia [Unknown]
  - Constipation [Unknown]
  - Stress urinary incontinence [Unknown]
  - Neck pain [Unknown]
  - Central nervous system lesion [Unknown]
  - Stomatitis [Unknown]
  - Muscle spasms [Unknown]
  - Somnolence [Unknown]
  - Dizziness [Unknown]
  - Fatigue [Unknown]
  - Abdominal discomfort [Unknown]
  - Micturition urgency [Unknown]

NARRATIVE: CASE EVENT DATE: 20240101
